FAERS Safety Report 11762481 (Version 2)
Quarter: 2015Q4

REPORT INFORMATION
  Report Type: Spontaneous
  Country: TR (occurrence: TR)
  Receive Date: 20151120
  Receipt Date: 20151124
  Transmission Date: 20160304
  Serious: Yes (Hospitalization)
  Sender: FDA-Public Use
  Company Number: TR-B.I. PHARMACEUTICALS,INC./RIDGEFIELD-2015-BI-64130TK

PATIENT
  Age: 74 Year
  Sex: Male

DRUGS (4)
  1. MIRAPEX [Suspect]
     Active Substance: PRAMIPEXOLE DIHYDROCHLORIDE
     Indication: PARKINSON^S DISEASE
     Dosage: 3 G
     Route: 065
  2. RASAGILINE [Concomitant]
     Active Substance: RASAGILINE
     Indication: PARKINSON^S DISEASE
     Dosage: 2 MG
     Route: 065
  3. MODAFINIL. [Concomitant]
     Active Substance: MODAFINIL
     Indication: PARKINSON^S DISEASE
     Dosage: 100 MG
     Route: 065
  4. LEVODOPA+BENSERAZID [Concomitant]
     Indication: PARKINSON^S DISEASE
     Dosage: 625 MG
     Route: 065

REACTIONS (4)
  - Resting tremor [Unknown]
  - Masked facies [Unknown]
  - Cogwheel rigidity [Unknown]
  - Sleep attacks [Unknown]
